FAERS Safety Report 4744992-X (Version None)
Quarter: 2005Q3

REPORT INFORMATION
  Report Type: 
  Country: None (occurrence: None)
  Receive Date: 20050811
  Receipt Date: 20050801
  Transmission Date: 20060218
  Serious: Yes (Other)
  Sender: FDA-Public Use
  Company Number: HQWYE670202AUG05

PATIENT
  Sex: Female

DRUGS (5)
  1. ADVIL COLD AND SINUS [Suspect]
     Indication: SINUS DISORDER
     Dosage: ONE PILL FOR TWO DAYS AND TWO PILLS ON THE THIRD DAY, ORAL; SEE IMAGE
     Route: 048
     Dates: end: 20050701
  2. ADVIL COLD AND SINUS [Suspect]
     Indication: SINUS HEADACHE
     Dosage: ONE PILL FOR TWO DAYS AND TWO PILLS ON THE THIRD DAY, ORAL; SEE IMAGE
     Route: 048
     Dates: end: 20050701
  3. ADVIL COLD AND SINUS [Suspect]
     Indication: SINUS DISORDER
     Dosage: ONE PILL FOR TWO DAYS AND TWO PILLS ON THE THIRD DAY, ORAL; SEE IMAGE
     Route: 048
     Dates: start: 20040101
  4. ADVIL COLD AND SINUS [Suspect]
     Indication: SINUS HEADACHE
     Dosage: ONE PILL FOR TWO DAYS AND TWO PILLS ON THE THIRD DAY, ORAL; SEE IMAGE
     Route: 048
     Dates: start: 20040101
  5. UNSPECIFIED VITAMINS (UNSPECIFIED VITAMINS) [Concomitant]

REACTIONS (3)
  - DEPRESSION [None]
  - SOMNOLENCE [None]
  - SUICIDAL IDEATION [None]
